FAERS Safety Report 14454244 (Version 2)
Quarter: 2018Q1

REPORT INFORMATION
  Report Type: Report from Study
  Country: ES (occurrence: ES)
  Receive Date: 20180129
  Receipt Date: 20180302
  Transmission Date: 20180509
  Serious: Yes (Hospitalization)
  Sender: FDA-Public Use
  Company Number: ES-PFIZER INC-2018032048

PATIENT
  Age: 2 Year
  Sex: Male
  Weight: 13.5 kg

DRUGS (9)
  1. HYDROCORTISONE. [Concomitant]
     Active Substance: HYDROCORTISONE
     Indication: ACUTE LYMPHOCYTIC LEUKAEMIA
     Dosage: 2 MG, EVERY 8H
     Route: 048
     Dates: start: 20170505, end: 20170509
  2. SEPTRIN PAEDIATRIC [Concomitant]
     Indication: PROPHYLAXIS
     Dosage: 4 ML, EVERY 12 H
     Route: 048
     Dates: start: 20161201
  3. ACICLOVIR [Concomitant]
     Active Substance: ACYCLOVIR
     Indication: PROPHYLAXIS
     Dosage: 136 MG, EVERY 8H
     Route: 048
     Dates: start: 20161201
  4. CYTARABINE. [Suspect]
     Active Substance: CYTARABINE
     Indication: ACUTE LYMPHOCYTIC LEUKAEMIA
     Dosage: 45 MG, 1X/DAY
     Route: 042
     Dates: start: 20170515, end: 20170515
  5. FORTECORTIN /00016001/ [Suspect]
     Active Substance: DEXAMETHASONE
     Indication: ACUTE LYMPHOCYTIC LEUKAEMIA
     Dosage: 3 MG, EVERY 12 H
     Route: 048
     Dates: start: 20170418, end: 20170504
  6. OMEPRAZOLE. [Concomitant]
     Active Substance: OMEPRAZOLE
     Indication: PROPHYLAXIS
     Dosage: 10 MG
     Route: 048
     Dates: start: 20170418, end: 20170509
  7. MESNA G.E.S [Concomitant]
     Indication: PROPHYLAXIS
     Dosage: 114 MG, 1X/DAY
     Route: 042
     Dates: start: 20170512, end: 20170512
  8. CYCLOPHOSPHAMIDE. [Suspect]
     Active Substance: CYCLOPHOSPHAMIDE
     Indication: ACUTE LYMPHOCYTIC LEUKAEMIA
     Dosage: 285 MG, 1X/DAY
     Route: 042
     Dates: start: 20170512, end: 20170512
  9. THIOGUANINE ASPEN 40 MG TABLET [Suspect]
     Active Substance: THIOGUANINE
     Indication: ACUTE LYMPHOCYTIC LEUKAEMIA
     Dosage: 30 MG, 1X/DAY
     Route: 048
     Dates: start: 20170512, end: 20170530

REACTIONS (2)
  - Mucosal inflammation [Recovered/Resolved]
  - Febrile neutropenia [Recovered/Resolved]

NARRATIVE: CASE EVENT DATE: 20170516
